FAERS Safety Report 7271454 (Version 3)
Quarter: 2013Q2

REPORT INFORMATION
  Report Type: Spontaneous
  Country: US (occurrence: None)
  Receive Date: 20091201
  Receipt Date: 20121203
  Transmission Date: 20140414
  Serious: Yes (Hospitalization, Other)
  Sender: FDA-Public Use
  Company Number: 2009SP023293

PATIENT
  Age: 33 Year
  Sex: Female
  Weight: 59 kg

DRUGS (3)
  1. NUVARING [Suspect]
     Indication: CONTRACEPTION
     Dates: start: 200505, end: 200610
  2. TYLENOL [Concomitant]
  3. HORMONE CONTRACEPTIVES [Suspect]

REACTIONS (2)
  - PULMONARY EMBOLISM [None]
  - Hypercoagulation [None]
